FAERS Safety Report 8561367-6 (Version None)
Quarter: 2012Q3

REPORT INFORMATION
  Report Type: 
  Country: None (occurrence: None)
  Receive Date: 20120802
  Receipt Date: 20120726
  Transmission Date: 20120928
  Serious: Yes (Hospitalization)
  Sender: FDA-Public Use
  Company Number: US-VERTEX PHARMACEUTICALS INC.-AE-2012-007925

PATIENT
  Sex: Female

DRUGS (4)
  1. RIBAVIRIN [Concomitant]
     Indication: HEPATITIS C
     Dates: start: 20120509
  2. RIBAVIRIN [Concomitant]
  3. INCIVEK [Suspect]
     Indication: HEPATITIS C
     Route: 048
     Dates: start: 20120509
  4. PEGASYS [Concomitant]
     Indication: HEPATITIS C
     Dates: start: 20120509

REACTIONS (11)
  - FATIGUE [None]
  - DYSPNOEA [None]
  - ANAEMIA [None]
  - PRURITUS [None]
  - OEDEMA [None]
  - MYALGIA [None]
  - DIZZINESS [None]
  - PALLOR [None]
  - HYPOTENSION [None]
  - DIARRHOEA [None]
  - NAUSEA [None]
